FAERS Safety Report 9843906 (Version 1)
Quarter: 2013Q4

REPORT INFORMATION
  Report Type: Spontaneous
  Country: US (occurrence: None)
  Receive Date: 20131223
  Receipt Date: 20131223
  Transmission Date: 20140711
  Serious: No
  Sender: FDA-Public Use
  Company Number: 1000049021

PATIENT
  Age: 70 Year
  Sex: Female

DRUGS (6)
  1. LINZESS [Suspect]
     Indication: IRRITABLE BOWEL SYNDROME
     Route: 048
     Dates: start: 201308, end: 20130918
  2. PROBIOTIC (LACTOBACILLUS ACIDOPHILUS) (LACTOBACILLUS) [Concomitant]
  3. EVISTA (RALOXIFENE HYDROCHLORIDE )(RALOXETINE HYDROCHLORIDE) [Concomitant]
  4. PROZAC (FLUOXETINE HYDROCHLORIDE) (FLUOXETINE HYDROCHLORIDE) [Concomitant]
  5. KLONOPIN (CLONAZEPAM)(CLONAZEPAM) [Concomitant]
  6. SINEMET (SINEMET) (SINEMET) [Concomitant]

REACTIONS (4)
  - Diarrhoea [None]
  - Constipation [None]
  - Faecal incontinence [None]
  - Flatulence [None]
